FAERS Safety Report 8138178-9 (Version None)
Quarter: 2012Q1

REPORT INFORMATION
  Report Type: 
  Country: None (occurrence: None)
  Receive Date: 20120213
  Receipt Date: 20120130
  Transmission Date: 20120608
  Serious: Yes (Other)
  Sender: FDA-Public Use
  Company Number: 2011P1009571

PATIENT
  Age: 36 Year
  Sex: Female
  Weight: 86.1834 kg

DRUGS (12)
  1. PRILOSEC [Concomitant]
  2. FENTANYL-75 [Suspect]
     Indication: FIBROMYALGIA
     Dosage: 1 PATCH;Q72H;TDER 1 PATCH;Q48H;TDER
     Route: 062
     Dates: start: 20090101, end: 20110101
  3. FENTANYL-75 [Suspect]
     Indication: NEUROPATHY PERIPHERAL
     Dosage: 1 PATCH;Q72H;TDER 1 PATCH;Q48H;TDER
     Route: 062
     Dates: start: 20090101, end: 20110101
  4. FENTANYL-75 [Suspect]
     Indication: INTERVERTEBRAL DISC DEGENERATION
     Dosage: 1 PATCH;Q72H;TDER 1 PATCH;Q48H;TDER
     Route: 062
     Dates: start: 20090101, end: 20110101
  5. FENTANYL-75 [Suspect]
     Indication: FIBROMYALGIA
     Dosage: 1 PATCH;Q72H;TDER 1 PATCH;Q48H;TDER
     Route: 062
     Dates: start: 20110101
  6. FENTANYL-75 [Suspect]
     Indication: NEUROPATHY PERIPHERAL
     Dosage: 1 PATCH;Q72H;TDER 1 PATCH;Q48H;TDER
     Route: 062
     Dates: start: 20110101
  7. FENTANYL-75 [Suspect]
     Indication: INTERVERTEBRAL DISC DEGENERATION
     Dosage: 1 PATCH;Q72H;TDER 1 PATCH;Q48H;TDER
     Route: 062
     Dates: start: 20110101
  8. PROPRANOLOL [Concomitant]
  9. DILANTIN [Concomitant]
  10. PHENERGAN [Concomitant]
  11. XANAX [Concomitant]
  12. OXYCONTIN [Concomitant]

REACTIONS (10)
  - NAUSEA [None]
  - APPLICATION SITE BURN [None]
  - HEADACHE [None]
  - DRUG HYPERSENSITIVITY [None]
  - SCAB [None]
  - DIARRHOEA [None]
  - APPLICATION SITE VESICLES [None]
  - CHEMICAL BURN OF SKIN [None]
  - PAIN [None]
  - SCAR [None]
